FAERS Safety Report 5489225-4 (Version None)
Quarter: 2007Q4

REPORT INFORMATION
  Report Type: 
  Country: None (occurrence: None)
  Receive Date: 20071016
  Receipt Date: 20071004
  Transmission Date: 20080405
  Serious: No
  Sender: FDA-Public Use
  Company Number: TPA2007A02044

PATIENT
  Sex: Female

DRUGS (4)
  1. ACTOS [Suspect]
     Dosage: 30 MG, 1 IN 1 D, PER ORAL; 45 MG, 1 IN 1 D, PER ORAL; 60 MG, QD, PER ORAL
     Route: 048
  2. GEODON [Concomitant]
  3. DEPAKOTE [Concomitant]
  4. UNKNOWN PSYCHIATRIC MEDICATIONS (ALL OTHER THERAPEUTIC PRODUCTS) [Concomitant]

REACTIONS (1)
  - WEIGHT INCREASED [None]
